FAERS Safety Report 4617245-8 (Version None)
Quarter: 2005Q1

REPORT INFORMATION
  Report Type: 
  Country: None (occurrence: None)
  Receive Date: 20050323
  Receipt Date: 20041230
  Transmission Date: 20050727
  Serious: Yes (Life-Threatening, Hospitalization, Other)
  Sender: FDA-Public Use
  Company Number: FR-NOVOPROD-241419

PATIENT
  Age: 86 Year
  Sex: Male
  Weight: 79 kg

DRUGS (13)
  1. ACTRAPID [Suspect]
     Indication: DIABETES MELLITUS
     Dosage: .16 IU, QD
     Route: 042
  2. CALCIUM GLUCONATE [Concomitant]
     Dosage: 2 TAB, QD
  3. ZINC [Concomitant]
  4. SELENIUM TRACE METAL ADDITIVE [Concomitant]
  5. SODIUM CHLORIDE 0.9% [Concomitant]
  6. POTASSIUM CHLORIDE [Concomitant]
  7. CORDARONE [Concomitant]
     Dosage: 3 AMP PER DAY INTRAVENOUS
     Route: 042
  8. HEPARIN [Concomitant]
     Dosage: 3000 IU/24 HOURS
  9. MAGNESIUM [Concomitant]
     Indication: ILL-DEFINED DISORDER
     Dosage: MAGNESIUM CHLORIDE
  10. AMINO ACIDS [Concomitant]
  11. KALIUMKLORID [Concomitant]
     Indication: ILL-DEFINED DISORDER
  12. VITAMIN B1 AND B6 [Concomitant]
     Indication: ILL-DEFINED DISORDER
  13. MORPHINE [Concomitant]
     Indication: ILL-DEFINED DISORDER

REACTIONS (9)
  - ATRIAL FIBRILLATION [None]
  - CYTOLYTIC HEPATITIS [None]
  - DRUG PHYSIOLOGIC INCOMPATIBILITY [None]
  - GASTROINTESTINAL NECROSIS [None]
  - HYPOGLYCAEMIC COMA [None]
  - INTESTINAL INFARCTION [None]
  - LOSS OF CONSCIOUSNESS [None]
  - RESPIRATORY DISTRESS [None]
  - SMALL INTESTINAL OBSTRUCTION [None]
